FAERS Safety Report 4943416-7 (Version None)
Quarter: 2006Q1

REPORT INFORMATION
  Report Type: 
  Country: None (occurrence: None)
  Receive Date: 20060314
  Receipt Date: 20060227
  Transmission Date: 20060701
  Serious: Yes (Other)
  Sender: FDA-Public Use
  Company Number: PHNU2006AU01162

PATIENT
  Sex: Male
  Weight: 115 kg

DRUGS (1)
  1. CLOZARIL [Suspect]
     Indication: SCHIZOPHRENIA
     Dosage: UP TO 200 MG/DAY
     Route: 048
     Dates: start: 20060213

REACTIONS (3)
  - DILATATION ATRIAL [None]
  - ECHOCARDIOGRAM ABNORMAL [None]
  - TACHYCARDIA [None]
